FAERS Safety Report 7436940-9 (Version None)
Quarter: 2011Q2

REPORT INFORMATION
  Report Type: 
  Country: None (occurrence: None)
  Receive Date: 20110426
  Receipt Date: 20110420
  Transmission Date: 20111010
  Serious: Yes (Other)
  Sender: FDA-Public Use
  Company Number: SE-AMGEN-SWESP2011021080

PATIENT
  Age: 35 Year
  Sex: Female

DRUGS (2)
  1. METHOTREXATE [Concomitant]
     Dosage: UNK
  2. ENBREL [Suspect]
     Indication: PSORIATIC ARTHROPATHY
     Dosage: UNK
     Dates: start: 20090101

REACTIONS (2)
  - THYROIDITIS [None]
  - OROPHARYNGEAL PAIN [None]
